FAERS Safety Report 8425515-0 (Version None)
Quarter: 2012Q2

REPORT INFORMATION
  Report Type: 
  Country: None (occurrence: None)
  Receive Date: 20120611
  Receipt Date: 20120531
  Transmission Date: 20120825
  Serious: Yes (Hospitalization)
  Sender: FDA-Public Use
  Company Number: JP-VERTEX PHARMACEUTICALS INC.-AE-2012-007860

PATIENT
  Age: 49 Year
  Sex: Male

DRUGS (10)
  1. ALLOPURINOL [Concomitant]
     Route: 048
     Dates: start: 20120525
  2. TELAVIC (TELAPREVIR) [Suspect]
     Indication: HEPATITIS C
     Route: 048
     Dates: start: 20120517, end: 20120524
  3. ACETAMINOPHEN [Concomitant]
     Route: 048
     Dates: start: 20120517
  4. PEG-INTRON [Concomitant]
     Indication: HEPATITIS C
     Route: 058
     Dates: start: 20120517, end: 20120524
  5. ADALAT CC [Concomitant]
     Route: 048
  6. LANSOPRAZOLE [Concomitant]
     Route: 048
     Dates: start: 20120517
  7. ALLEGRA [Concomitant]
     Route: 048
     Dates: start: 20120517
  8. CLOBETASOL PROPIONATE [Concomitant]
     Route: 061
     Dates: start: 20120517
  9. REBETOL [Concomitant]
     Indication: HEPATITIS C
     Route: 048
     Dates: start: 20120517, end: 20120524
  10. OLMESARTAN MEDOXOMIL [Concomitant]
     Route: 048

REACTIONS (2)
  - RASH [None]
  - RENAL IMPAIRMENT [None]
